FAERS Safety Report 4396031-0 (Version None)
Quarter: 2004Q3

REPORT INFORMATION
  Report Type: 
  Country: None (occurrence: None)
  Receive Date: 20040708
  Receipt Date: 20040624
  Transmission Date: 20050211
  Serious: Yes (Death)
  Sender: FDA-Public Use
  Company Number: US013378

PATIENT
  Age: 49 Year

DRUGS (1)
  1. TIAGABINE [Suspect]
     Dates: end: 20020101

REACTIONS (2)
  - COMPLETED SUICIDE [None]
  - TOXICOLOGIC TEST ABNORMAL [None]
